FAERS Safety Report 18675069 (Version 1)
Quarter: 2020Q4

REPORT INFORMATION
  Report Type: Spontaneous
  Country: US (occurrence: US)
  Receive Date: 20201228
  Receipt Date: 20201228
  Transmission Date: 20210114
  Serious: Yes (Death)
  Sender: FDA-Public Use
  Company Number: None

PATIENT
  Age: 90 Year
  Sex: Female

DRUGS (10)
  1. HYDRALAZINE HCL [Concomitant]
     Active Substance: HYDRALAZINE HYDROCHLORIDE
  2. NORVASC [Concomitant]
     Active Substance: AMLODIPINE BESYLATE
  3. BENICAR HCT [Concomitant]
     Active Substance: HYDROCHLOROTHIAZIDE\OLMESARTAN MEDOXOMIL
  4. ESCITALOPRAM OXALATE. [Concomitant]
     Active Substance: ESCITALOPRAM OXALATE
  5. ARANESP [Suspect]
     Active Substance: DARBEPOETIN ALFA
  6. LABETALOL HCL [Concomitant]
     Active Substance: LABETALOL HYDROCHLORIDE
  7. LISINOPRIL. [Concomitant]
     Active Substance: LISINOPRIL
  8. CATAPRES [Concomitant]
     Active Substance: CLONIDINE HYDROCHLORIDE
  9. MEMANTINE HCL [Concomitant]
     Active Substance: MEMANTINE
  10. METFORMIN HCL [Concomitant]
     Active Substance: METFORMIN HYDROCHLORIDE

REACTIONS (1)
  - Death [None]
